FAERS Safety Report 24594439 (Version 1)
Quarter: 2024Q4

REPORT INFORMATION
  Report Type: Report from Study
  Country: CA (occurrence: CA)
  Receive Date: 20241108
  Receipt Date: 20241108
  Transmission Date: 20250115
  Serious: Yes (Other)
  Sender: JOHNSON AND JOHNSON
  Company Number: CA-JNJFOC-20240911972

PATIENT
  Age: 59 Year
  Sex: Male
  Weight: 114 kg

DRUGS (1)
  1. REMICADE [Suspect]
     Active Substance: INFLIXIMAB
     Indication: Colitis ulcerative
     Route: 041
     Dates: start: 20240812

REACTIONS (6)
  - Headache [Recovering/Resolving]
  - COVID-19 [Recovered/Resolved]
  - Fatigue [Recovered/Resolved]
  - Decreased interest [Recovered/Resolved]
  - Decreased appetite [Recovered/Resolved]
  - Cognitive disorder [Not Recovered/Not Resolved]

NARRATIVE: CASE EVENT DATE: 20240101
